FAERS Safety Report 9923681 (Version 1)
Quarter: 2014Q1

REPORT INFORMATION
  Report Type: Spontaneous
  Country: US (occurrence: US)
  Receive Date: 20140225
  Receipt Date: 20140225
  Transmission Date: 20141002
  Serious: No
  Sender: FDA-Public Use
  Company Number: US-AMGEN-USASP2013090540

PATIENT
  Age: 65 Year
  Sex: Female
  Weight: 93.87 kg

DRUGS (10)
  1. ENBREL [Suspect]
     Indication: PRODUCT USED FOR UNKNOWN INDICATION
     Dosage: 50 MG, QWK
     Route: 058
  2. OSCAL 500 + D [Concomitant]
     Dosage: 200 UNK, UNK
  3. CENTRUM                            /02217401/ [Concomitant]
     Dosage: UNK
  4. METHOTREXATE [Concomitant]
     Dosage: 2.5 MG, UNK
  5. FOLIC ACID [Concomitant]
     Dosage: 20 MG, UNK
  6. OMEPRAZOLE [Concomitant]
     Dosage: 10 MG, UNK
  7. BABY ASPIRIN [Concomitant]
     Dosage: 81 MG, UNK
  8. BISOPROLOL FUMERATE [Concomitant]
     Dosage: 10 MG, UNK
  9. FEMARA [Concomitant]
     Dosage: 2.5 MG, UNK
  10. DICLOFENAC [Concomitant]
     Dosage: 100 MG, UNK

REACTIONS (1)
  - Blood pressure increased [Unknown]
